FAERS Safety Report 17512012 (Version 1)
Quarter: 2020Q1

REPORT INFORMATION
  Report Type: Spontaneous
  Country: FR (occurrence: FR)
  Receive Date: 20200307
  Receipt Date: 20200307
  Transmission Date: 20200409
  Serious: Yes (Hospitalization)
  Sender: FDA-Public Use
  Company Number: FR-ZYDUS-048220

PATIENT
  Age: 83 Year
  Sex: Female
  Weight: 71.9 kg

DRUGS (7)
  1. ALGINIC ACID/ALUMINIUM HYDROXIDE GEL/DRIED/MAGNESIUM TRISILICATE/SODIUM ALGINATE/SODIUM BICARBONATE [Suspect]
     Active Substance: ALGINIC ACID\ALUMINUM HYDROXIDE\MAGNESIUM TRISILICATE\SODIUM ALGINATE\SODIUM BICARBONATE
     Indication: GASTROINTESTINAL DISORDER
     Route: 048
  2. BISOPROLOL [Suspect]
     Active Substance: BISOPROLOL
     Indication: VENTRICULAR EXTRASYSTOLES
     Route: 048
     Dates: start: 201706
  3. ACIDE ZOLEDRONIQUE MONOHYDRATE [Suspect]
     Active Substance: ZOLEDRONIC ACID
     Indication: OSTEOPOROSIS
     Dosage: ()
     Route: 041
     Dates: start: 202001, end: 202001
  4. CLOPIDOGREL [Suspect]
     Active Substance: CLOPIDOGREL BISULFATE
     Indication: ISCHAEMIC STROKE
     Route: 048
     Dates: start: 2011, end: 20200202
  5. CHOLECALCIFEROL [Suspect]
     Active Substance: CHOLECALCIFEROL
     Indication: VITAMIN SUPPLEMENTATION
     Route: 048
  6. PARACETAMOL [Suspect]
     Active Substance: ACETAMINOPHEN
     Indication: GAIT DISTURBANCE
     Route: 048
     Dates: start: 201907
  7. ROSUVASTATIN/ROSUVASTATIN CALCIUM [Suspect]
     Active Substance: ROSUVASTATIN CALCIUM
     Indication: ISCHAEMIC STROKE
     Route: 048

REACTIONS (2)
  - Subdural haematoma [Recovering/Resolving]
  - Immune thrombocytopenic purpura [Recovering/Resolving]

NARRATIVE: CASE EVENT DATE: 20200202
